FAERS Safety Report 8059292-2 (Version None)
Quarter: 2012Q1

REPORT INFORMATION
  Report Type: 
  Country: None (occurrence: None)
  Receive Date: 20120120
  Receipt Date: 20120111
  Transmission Date: 20120608
  Serious: Yes (Other)
  Sender: FDA-Public Use
  Company Number: BE-SANOFI-AVENTIS-2011SA065333

PATIENT
  Age: 39 Year
  Sex: Female
  Weight: 58 kg

DRUGS (8)
  1. ARAVA [Suspect]
     Indication: POLYARTHRITIS
     Dosage: IN THE EVENING
     Route: 048
     Dates: start: 20080301, end: 20100201
  2. KETOPROFEN [Interacting]
     Indication: POLYARTHRITIS
     Dosage: IN THE EVENNING
     Route: 048
     Dates: start: 19930101
  3. MEDROL [Concomitant]
     Dosage: IN MORNING
  4. KETOPROFEN [Interacting]
     Dosage: IN THE MORNING
     Route: 048
     Dates: start: 20080101
  5. METHOTREXATE [Concomitant]
     Indication: POLYARTHRITIS
     Dates: start: 20071201, end: 20080201
  6. ASAFLOW [Concomitant]
     Dosage: IN EVENING
  7. SINTROM [Concomitant]
  8. KETOPROFEN [Interacting]
     Dosage: ONLY WHEN COMBINED WITH ARAVA 20 MG
     Route: 048
     Dates: end: 20100201

REACTIONS (7)
  - HAEMOGLOBIN DECREASED [None]
  - GYNAECOLOGICAL EXAMINATION ABNORMAL [None]
  - MITRAL VALVE PROLAPSE [None]
  - GASTROOESOPHAGEAL REFLUX DISEASE [None]
  - DRUG INTERACTION [None]
  - CARDIAC FAILURE [None]
  - COMPLEMENT FACTOR DECREASED [None]
